FAERS Safety Report 8911013 (Version 1)
Quarter: 2012Q4

REPORT INFORMATION
  Report Type: 
  Country: SE (occurrence: SE)
  Receive Date: 20121115
  Receipt Date: 20121115
  Transmission Date: 20130627
  Serious: Yes (Hospitalization)
  Sender: FDA-Public Use
  Company Number: SE-ASTRAZENECA-2012SE84527

PATIENT
  Age: 23293 Day
  Sex: Female

DRUGS (12)
  1. MARCAINE [Suspect]
     Route: 008
     Dates: start: 20120323, end: 20120328
  2. PERFALGAN [Concomitant]
  3. FENTANYL [Concomitant]
  4. ESMERON [Concomitant]
  5. PROPOFOL (BAYER) [Concomitant]
  6. BACTRIM [Concomitant]
  7. MORFIN [Concomitant]
     Route: 008
     Dates: start: 20120323, end: 20120328
  8. IBUMETIN [Concomitant]
  9. KLEXANE [Concomitant]
  10. METRONIDAZOL [Concomitant]
  11. ONDANSETRON [Concomitant]
  12. NAROP [Concomitant]

REACTIONS (5)
  - Pruritus [Recovered/Resolved]
  - Hyperaesthesia [Recovered/Resolved]
  - Skin burning sensation [Recovered/Resolved]
  - Allodynia [Recovered/Resolved]
  - Sensory disturbance [Recovered/Resolved]
